FAERS Safety Report 23808626 (Version 1)
Quarter: 2024Q2

REPORT INFORMATION
  Report Type: Spontaneous
  Country: TR (occurrence: TR)
  Receive Date: 20240502
  Receipt Date: 20240502
  Transmission Date: 20240716
  Serious: Yes (Other)
  Sender: FDA-Public Use
  Company Number: None

PATIENT
  Age: 31 Year
  Sex: Male
  Weight: 70 kg

DRUGS (1)
  1. BIKTARVY [Suspect]
     Active Substance: BICTEGRAVIR SODIUM\EMTRICITABINE\TENOFOVIR ALAFENAMIDE FUMARATE
     Indication: HIV infection
     Dosage: 1 DOSAGE FORM, QD
     Route: 048
     Dates: start: 20240308, end: 20240405

REACTIONS (3)
  - Hallucination [Unknown]
  - Agitation [Unknown]
  - Delusion [Unknown]

NARRATIVE: CASE EVENT DATE: 20240315
